FAERS Safety Report 16182189 (Version 1)
Quarter: 2019Q2

REPORT INFORMATION
  Report Type: Spontaneous
  Country: US (occurrence: US)
  Receive Date: 20190411
  Receipt Date: 20190411
  Transmission Date: 20190711
  Serious: Yes (Hospitalization, Other)
  Sender: FDA-Public Use
  Company Number: US-ACCORD-119543

PATIENT
  Age: 46 Year
  Sex: Female

DRUGS (5)
  1. DOXYCYCLINE. [Concomitant]
     Active Substance: DOXYCYCLINE
     Indication: PEMPHIGOID
     Dates: start: 2016
  2. MYCOPHENOLIC ACID. [Suspect]
     Active Substance: MYCOPHENOLIC ACID
     Indication: PEMPHIGOID
     Dates: start: 2016, end: 2017
  3. RITUXIMAB. [Suspect]
     Active Substance: RITUXIMAB
     Indication: PEMPHIGOID
     Dosage: WEEKLY FOR 4 WEEKS
     Dates: start: 2017
  4. PREDNISONE. [Concomitant]
     Active Substance: PREDNISONE
     Indication: PEMPHIGOID
     Dates: start: 2016
  5. NICOTINAMIDE [Concomitant]
     Active Substance: NIACINAMIDE
     Indication: PEMPHIGOID
     Dates: start: 2016

REACTIONS (2)
  - Febrile neutropenia [Recovered/Resolved]
  - Neutropenia [Recovered/Resolved]

NARRATIVE: CASE EVENT DATE: 2017
